FAERS Safety Report 6016961-3 (Version None)
Quarter: 2008Q4

REPORT INFORMATION
  Report Type: 
  Country: None (occurrence: None)
  Receive Date: 20081219
  Receipt Date: 20081208
  Transmission Date: 20090506
  Serious: Yes (Other)
  Sender: FDA-Public Use
  Company Number: 8040181

PATIENT
  Age: 44 Year
  Sex: Female
  Weight: 49.8 kg

DRUGS (4)
  1. KEPPRA [Suspect]
     Indication: CONVULSION
     Dosage: 1500 MG 2/D PO
     Route: 048
     Dates: start: 20050101
  2. LAMICTAL, 50 MG /D PO [Concomitant]
  3. LAMICTAL, 100 MG /D PO [Concomitant]
  4. CALCIUM, 1200 MG /D PO [Concomitant]

REACTIONS (5)
  - ALOPECIA [None]
  - COELIAC DISEASE [None]
  - GASTROINTESTINAL PAIN [None]
  - MEDICATION ERROR [None]
  - PARATHYROIDECTOMY [None]
